FAERS Safety Report 5945294-6 (Version None)
Quarter: 2008Q4

REPORT INFORMATION
  Report Type: 
  Country: None (occurrence: None)
  Receive Date: 20081107
  Receipt Date: 20081028
  Transmission Date: 20090506
  Serious: Yes (Life-Threatening, Other)
  Sender: FDA-Public Use
  Company Number: JP-ROCHE-541290

PATIENT
  Sex: Male
  Weight: 49 kg

DRUGS (17)
  1. TAMIFLU [Suspect]
     Dosage: DOSE DECREASED
     Route: 048
     Dates: start: 20080106, end: 20080109
  2. TAMIFLU [Suspect]
     Dosage: DOSE DECREASED
     Route: 048
     Dates: start: 20080110, end: 20080110
  3. HANP [Concomitant]
     Dosage: ROUTE: INJECTABLE (NOT OTHERWISE SPECIFIED)
     Dates: start: 20080105
  4. ELASPOL [Concomitant]
     Dosage: ROUTE: INJECTABLE (NOT OTHERWISE SPECIFIED)
     Dates: start: 20080105
  5. CEFAZOLIN [Concomitant]
     Dosage: ROUTE: INJECTABLE (NOT OTHERWISE SPECIFIED)
     Dates: start: 20080105
  6. HEPATITIS B IMMUNE GLOBULIN (HUMAN) [Concomitant]
     Dosage: ROUTE: INJECTABLE (NOT OTHERWISE SPECIFIED)
     Dates: start: 20080106
  7. PIPERACILLIN SODIUM [Concomitant]
     Dosage: ROUTE: INJECTABLE (NOT OTHERWISE SPECIFIED)
     Dates: start: 20080106
  8. FLOMOXEF SODIUM [Concomitant]
     Dosage: ROUTE: INJECTABLE (NOT OTHERWISE SPECIFIED)
     Dates: start: 20080106
  9. DOPAMINE HYDROCHLORIDE [Concomitant]
     Dosage: ROUTE: INJECTABLE (NOT OTHERWISE SPECIFIED)
     Dates: start: 20080106
  10. HEPARIN [Concomitant]
     Dosage: ROUTE: INJECTABLE (NOT OTHERWISE SPECIFIED)
     Dates: start: 20080106
  11. ASPIRIN [Concomitant]
     Dosage: DOSE FORM: ENTERIC
     Route: 048
     Dates: start: 20080106
  12. LANSOPRAZOLE [Concomitant]
     Route: 048
     Dates: start: 20080106
  13. MAGNESIUM OXIDE [Concomitant]
     Route: 048
     Dates: start: 20080106, end: 20080107
  14. SUNRYTHM [Concomitant]
     Route: 048
     Dates: start: 20080106, end: 20080110
  15. SLOW-K [Concomitant]
     Dosage: FORM: SUSTAINED RELEASE TABLET
     Route: 048
     Dates: start: 20080106, end: 20080110
  16. FLUITRAN [Concomitant]
     Route: 048
     Dates: start: 20080106, end: 20080110
  17. WARFARIN POTASSIUM [Concomitant]
     Route: 048
     Dates: start: 20080106

REACTIONS (3)
  - HEPATIC FUNCTION ABNORMAL [None]
  - MYOCARDITIS [None]
  - RENAL IMPAIRMENT [None]
